FAERS Safety Report 11240091 (Version 1)
Quarter: 2015Q3

REPORT INFORMATION
  Report Type: Spontaneous
  Country: US (occurrence: None)
  Receive Date: 20150701
  Receipt Date: 20150701
  Transmission Date: 20151125
  Serious: No
  Sender: FDA-Public Use
  Company Number: None

PATIENT
  Age: 66 Year
  Sex: Female
  Weight: 49.9 kg

DRUGS (5)
  1. VITAMIN D3 [Concomitant]
     Active Substance: CHOLECALCIFEROL
  2. ALPHAGON/ALENDRONATE [Concomitant]
  3. BETIMOL [Suspect]
     Active Substance: TIMOLOL
     Indication: GLAUCOMA
     Dosage: 1 DROP IN EACH EYE IN MORNING  ONCE/DAY  PLACE INTO EYES
     Route: 047
     Dates: start: 20130928, end: 20150607
  4. CENTRIUM SILVER 50+ [Concomitant]
  5. OSCAL ULTRA + VIT. D3 [Concomitant]

REACTIONS (3)
  - Amnesia [None]
  - Dysarthria [None]
  - Cerebral disorder [None]

NARRATIVE: CASE EVENT DATE: 201202
